FAERS Safety Report 8132522-4 (Version None)
Quarter: 2012Q1

REPORT INFORMATION
  Report Type: 
  Country: None (occurrence: None)
  Receive Date: 20120213
  Receipt Date: 20120206
  Transmission Date: 20120608
  Serious: Yes (Hospitalization)
  Sender: FDA-Public Use
  Company Number: DK-B.I. PHARMACEUTICALS,INC./RIDGEFIELD-2011-SW-00272DB

PATIENT
  Sex: Female

DRUGS (3)
  1. PRAMIPEXOLE DIHYCHLLORIDE [Suspect]
     Indication: RESTLESS LEGS SYNDROME
     Dosage: 0.35 MG
     Route: 048
     Dates: start: 20101001, end: 20110105
  2. LEVOTHYROXINE SODIUM [Concomitant]
     Indication: HYPOTHYROIDISM
  3. VIBEDEN [Concomitant]
     Indication: VITAMIN B12 DEFICIENCY
     Dates: start: 20080110

REACTIONS (2)
  - HEPATITIS TOXIC [None]
  - JAUNDICE [None]
